FAERS Safety Report 4679418-8 (Version None)
Quarter: 2005Q2

REPORT INFORMATION
  Report Type: 
  Country: None (occurrence: None)
  Receive Date: 20050602
  Receipt Date: 20050516
  Transmission Date: 20051028
  Serious: Yes (Other)
  Sender: FDA-Public Use
  Company Number: 2005UW07559

PATIENT
  Age: 41 Year
  Sex: Female

DRUGS (5)
  1. SEROQUEL [Suspect]
     Indication: BIPOLAR DISORDER
     Route: 048
  2. METHADONE [Concomitant]
  3. XANAX [Concomitant]
  4. CRACK [Concomitant]
  5. ALL KINDS OF DRUGS [Concomitant]

REACTIONS (4)
  - DRUG ABUSER [None]
  - LOSS OF CONSCIOUSNESS [None]
  - SELF-INJURIOUS IDEATION [None]
  - WEIGHT DECREASED [None]
